FAERS Safety Report 11267170 (Version 1)
Quarter: 2015Q3

REPORT INFORMATION
  Report Type: Spontaneous
  Country: US (occurrence: US)
  Receive Date: 20150713
  Receipt Date: 20150713
  Transmission Date: 20151125
  Serious: No
  Sender: FDA-Public Use
  Company Number: US-DSJP-DSU-2014-118424

PATIENT
  Age: 43 Year
  Sex: Female
  Weight: 93.88 kg

DRUGS (3)
  1. WELCHOL [Suspect]
     Active Substance: COLESEVELAM HYDROCHLORIDE
     Indication: HYPERCHOLESTEROLAEMIA
     Dosage: 3.75 G, BID
     Route: 048
     Dates: start: 20140725, end: 201407
  2. WELCHOL [Suspect]
     Active Substance: COLESEVELAM HYDROCHLORIDE
     Indication: HYPERCHOLESTEROLAEMIA
     Dosage: 3750 MG, QD
     Route: 048
     Dates: start: 201407, end: 201408
  3. WELCHOL [Suspect]
     Active Substance: COLESEVELAM HYDROCHLORIDE
     Dosage: 625 MG, QD
     Route: 048
     Dates: start: 201408

REACTIONS (5)
  - Weight decreased [Unknown]
  - Dysphagia [Recovered/Resolved]
  - Drug prescribing error [Not Recovered/Not Resolved]
  - Hypoaesthesia [Recovered/Resolved]
  - Paraesthesia [Recovered/Resolved]

NARRATIVE: CASE EVENT DATE: 2014
